FAERS Safety Report 8925682 (Version 1)
Quarter: 2012Q4

REPORT INFORMATION
  Report Type: 
  Country: JP (occurrence: JP)
  Receive Date: 20121126
  Receipt Date: 20121126
  Transmission Date: 20130627
  Serious: Yes (Death)
  Sender: FDA-Public Use
  Company Number: JP-ROCHE-1118414

PATIENT
  Age: 5 None
  Sex: Female

DRUGS (1)
  1. VESANOID [Suspect]
     Indication: PRODUCT USED FOR UNKNOWN INDICATION
     Dosage: The administration period: For about one week
Dosage is uncertain.
     Route: 048

REACTIONS (2)
  - Headache [Recovering/Resolving]
  - Death [Fatal]
